FAERS Safety Report 17025300 (Version 3)
Quarter: 2020Q1

REPORT INFORMATION
  Report Type: Spontaneous
  Country: US (occurrence: US)
  Receive Date: 20191113
  Receipt Date: 20200114
  Transmission Date: 20200409
  Serious: Yes (Hospitalization, Other)
  Sender: FDA-Public Use
  Company Number: US-GLAXOSMITHKLINE-US2019202853

PATIENT
  Sex: Female

DRUGS (1)
  1. SEREVENT DISKUS [Suspect]
     Active Substance: SALMETEROL XINAFOATE
     Indication: PRODUCT USED FOR UNKNOWN INDICATION
     Dosage: 1 PUFF(S), BID
     Route: 055
     Dates: start: 2018

REACTIONS (7)
  - Underdose [Unknown]
  - Ill-defined disorder [Unknown]
  - Product dose omission [Unknown]
  - Intestinal obstruction [Unknown]
  - Wrong technique in device usage process [Unknown]
  - Product complaint [Unknown]
  - Cataract operation [Unknown]
